FAERS Safety Report 9063855 (Version 1)
Quarter: 2013Q1

REPORT INFORMATION
  Report Type: Report from Study
  Country: US (occurrence: US)
  Receive Date: 20130130
  Receipt Date: 20130130
  Transmission Date: 20140127
  Serious: No
  Sender: FDA-Public Use
  Company Number: US-ABBOTT-12P-163-0937302-00

PATIENT
  Age: 74 Year
  Sex: Female

DRUGS (13)
  1. HUMIRA 40 MG/0.8 ML PEN [Suspect]
     Indication: CROHN^S DISEASE
     Dosage: LOADING DOSE
     Dates: start: 20120509
  2. LISINOPRIL [Concomitant]
     Indication: HYPERTENSION
     Dosage: 10MG DAILY
     Route: 048
  3. BYSTOLIC [Concomitant]
     Indication: HYPERTENSION
     Dosage: 20MG DAILY
     Route: 048
  4. LEVOXYL [Concomitant]
     Indication: HYPOTHYROIDISM
  5. PREMARIN [Concomitant]
     Indication: HORMONE REPLACEMENT THERAPY
  6. PRILOSEC [Concomitant]
     Indication: GASTROOESOPHAGEAL REFLUX DISEASE
     Route: 048
  7. WELCHOL [Concomitant]
     Indication: BLOOD CHOLESTEROL INCREASED
  8. POTASSIUM [Concomitant]
     Indication: PRODUCT USED FOR UNKNOWN INDICATION
     Dosage: 20MEQ DAILY
     Route: 048
  9. ICAPS [Concomitant]
     Indication: SUPPLEMENTATION THERAPY
  10. GLUCOSAMINE + CHONDROITIN COMPLEX [Concomitant]
     Indication: VITAMIN SUPPLEMENTATION
  11. PREDNISONE [Concomitant]
     Indication: PRODUCT USED FOR UNKNOWN INDICATION
     Dosage: 16MG DAILY
     Route: 048
  12. PREDNISONE [Concomitant]
     Dosage: 8MG DAILY, TAPER AS DIRECTED
  13. FLONASE [Concomitant]
     Indication: PRODUCT USED FOR UNKNOWN INDICATION
     Dosage: 2 PUFFS DAILY

REACTIONS (13)
  - Productive cough [Unknown]
  - Sinus congestion [Not Recovered/Not Resolved]
  - Rash macular [Not Recovered/Not Resolved]
  - Blood blister [Unknown]
  - Blood blister [Unknown]
  - Scab [Unknown]
  - Injection site pain [Not Recovered/Not Resolved]
  - Productive cough [Not Recovered/Not Resolved]
  - Rhinalgia [Not Recovered/Not Resolved]
  - Sputum discoloured [Not Recovered/Not Resolved]
  - Productive cough [Unknown]
  - Back pain [Unknown]
  - Back pain [Recovered/Resolved]
